FAERS Safety Report 12557064 (Version 2)
Quarter: 2016Q3

REPORT INFORMATION
  Report Type: Spontaneous
  Country: JP (occurrence: JP)
  Receive Date: 20160714
  Receipt Date: 20160808
  Transmission Date: 20161109
  Serious: Yes (Hospitalization)
  Sender: FDA-Public Use
  Company Number: JP-ELI_LILLY_AND_COMPANY-JP201607003594

PATIENT
  Age: 92 Year
  Sex: Male

DRUGS (11)
  1. ALLOPURINOL. [Concomitant]
     Active Substance: ALLOPURINOL
  2. KALIMATE [Concomitant]
     Active Substance: CALCIUM POLYSTYRENE SULFONATE
  3. ATELEC [Concomitant]
     Active Substance: CILNIDIPINE
  4. ZALUTIA [Suspect]
     Active Substance: TADALAFIL
     Indication: PRODUCT USED FOR UNKNOWN INDICATION
     Dosage: 5 MG, QD
     Route: 048
  5. TRAZENTA [Concomitant]
     Active Substance: LINAGLIPTIN
  6. AMARYL [Concomitant]
     Active Substance: GLIMEPIRIDE
  7. FUROSEMIDE. [Concomitant]
     Active Substance: FUROSEMIDE
  8. URIEF [Concomitant]
     Active Substance: SILODOSIN
  9. MICAMLO [Concomitant]
     Active Substance: AMLODIPINE BESYLATE\TELMISARTAN
  10. PRAVASTATIN. [Concomitant]
     Active Substance: PRAVASTATIN
  11. ANPLAG [Concomitant]
     Active Substance: SARPOGRELATE

REACTIONS (1)
  - Diabetes mellitus inadequate control [Recovered/Resolved]

NARRATIVE: CASE EVENT DATE: 20160630
